FAERS Safety Report 16829618 (Version 1)
Quarter: 2019Q3

REPORT INFORMATION
  Report Type: Report from Study
  Country: SE (occurrence: SE)
  Receive Date: 20190919
  Receipt Date: 20190919
  Transmission Date: 20191005
  Serious: Yes (Other)
  Sender: FDA-Public Use
  Company Number: SE-JNJFOC-20190914241

PATIENT

DRUGS (2)
  1. CAELYX [Suspect]
     Active Substance: DOXORUBICIN HYDROCHLORIDE
     Dosage: DEB-TACE, MAXIMUM DOSE OF 150 MG
     Route: 065
  2. CAELYX [Suspect]
     Active Substance: DOXORUBICIN HYDROCHLORIDE
     Indication: HEPATOCELLULAR CARCINOMA
     Dosage: CTACE MAXIMUM DOSE OF 50 MG
     Route: 065

REACTIONS (13)
  - Ascites [Unknown]
  - Sepsis [Unknown]
  - Off label use [Unknown]
  - Jaundice [Unknown]
  - Infection [Unknown]
  - Nausea [Unknown]
  - Haematoma [Unknown]
  - Abdominal pain [Unknown]
  - Vomiting [Unknown]
  - Product use in unapproved indication [Unknown]
  - Pyrexia [Unknown]
  - Fatigue [Unknown]
  - Haemorrhage [Unknown]
